FAERS Safety Report 16681508 (Version 1)
Quarter: 2019Q3

REPORT INFORMATION
  Report Type: Spontaneous
  Country: US (occurrence: US)
  Receive Date: 20190808
  Receipt Date: 20190808
  Transmission Date: 20191004
  Serious: No
  Sender: FDA-Public Use
  Company Number: PHEH2019US032852

PATIENT
  Age: 4 Year
  Sex: Male

DRUGS (1)
  1. MEKINIST [Suspect]
     Active Substance: TRAMETINIB DIMETHYL SULFOXIDE
     Indication: TUBEROUS SCLEROSIS COMPLEX
     Dosage: 0.5 MG, QD
     Route: 048
     Dates: start: 20190711

REACTIONS (1)
  - Acne [Unknown]

NARRATIVE: CASE EVENT DATE: 201907
